FAERS Safety Report 7892807-3 (Version None)
Quarter: 2011Q4

REPORT INFORMATION
  Report Type: 
  Country: None (occurrence: None)
  Receive Date: 20111104
  Receipt Date: 20111027
  Transmission Date: 20120403
  Serious: Yes (Other)
  Sender: FDA-Public Use
  Company Number: DE-AMGEN-DEUSP2011051711

PATIENT
  Age: 30 Year
  Sex: Female
  Weight: 77 kg

DRUGS (3)
  1. ENBREL [Suspect]
     Indication: PRODUCT USED FOR UNKNOWN INDICATION
     Dosage: 50 MG, ONCE WEEKLY
     Route: 058
     Dates: start: 20110215
  2. PREDNISOLONE [Concomitant]
     Indication: POLYARTHRITIS
     Dosage: 5 MG, 1X/DAY
     Route: 048
  3. DICLO                              /00372301/ [Concomitant]
     Indication: POLYARTHRITIS
     Dosage: 75 MG, 1X/DAY
     Route: 048

REACTIONS (1)
  - URINARY TRACT INFECTION [None]
